FAERS Safety Report 9803816 (Version 1)
Quarter: 2014Q1

REPORT INFORMATION
  Report Type: Spontaneous
  Country: US (occurrence: None)
  Receive Date: 20140107
  Receipt Date: 20140107
  Transmission Date: 20141002
  Serious: No
  Sender: FDA-Public Use
  Company Number: None

PATIENT
  Age: 37 Year
  Sex: Female

DRUGS (1)
  1. HUMIRA 40MG ABBVIE [Suspect]
     Indication: ENTERITIS
     Dosage: 40MG, QW, SQ
     Dates: start: 20110120, end: 20140106

REACTIONS (1)
  - Psoriasis [None]
